FAERS Safety Report 24982977 (Version 3)
Quarter: 2025Q1

REPORT INFORMATION
  Report Type: Report from Study
  Country: US (occurrence: US)
  Receive Date: 20250218
  Receipt Date: 20250320
  Transmission Date: 20250409
  Serious: Yes (Hospitalization, Other)
  Sender: ABBVIE
  Company Number: US-ABBVIE-6137559

PATIENT
  Age: 60 Year
  Sex: Male
  Weight: 114 kg

DRUGS (3)
  1. HUMIRA [Suspect]
     Active Substance: ADALIMUMAB
     Indication: Psoriasis
     Dosage: FORM STRENGTH: 40 MILLIGRAM
     Route: 058
     Dates: start: 20190902, end: 20241222
  2. XARELTO [Concomitant]
     Active Substance: RIVAROXABAN
     Indication: Atrial fibrillation
  3. FAMOTIDINE [Concomitant]
     Active Substance: FAMOTIDINE
     Indication: Gastrooesophageal reflux disease

REACTIONS (8)
  - Diverticulitis intestinal perforated [Recovered/Resolved]
  - Drug ineffective [Unknown]
  - Abdominal discomfort [Recovered/Resolved]
  - Decreased appetite [Unknown]
  - Large intestine perforation [Recovered/Resolved]
  - Colectomy [Recovered/Resolved]
  - Intestinal sepsis [Recovered/Resolved]
  - Psoriasis [Recovering/Resolving]

NARRATIVE: CASE EVENT DATE: 20241218
